FAERS Safety Report 10182646 (Version 1)
Quarter: 2014Q2

REPORT INFORMATION
  Report Type: Spontaneous
  Country: US (occurrence: None)
  Receive Date: 20140519
  Receipt Date: 20140519
  Transmission Date: 20141212
  Serious: Yes (Other)
  Sender: FDA-Public Use
  Company Number: None

PATIENT
  Age: 60 Year
  Sex: Female
  Weight: 73.94 kg

DRUGS (1)
  1. FOSAMAX [Suspect]
     Indication: OSTEOPOROSIS
     Dosage: 2 1/2 YEARS

REACTIONS (6)
  - Loose tooth [None]
  - Back pain [None]
  - Arthralgia [None]
  - Gait disturbance [None]
  - Breast cancer [None]
  - Tooth fracture [None]
